FAERS Safety Report 14172539 (Version 1)
Quarter: 2017Q4

REPORT INFORMATION
  Report Type: Spontaneous
  Country: TR (occurrence: TR)
  Receive Date: 20171109
  Receipt Date: 20171109
  Transmission Date: 20180321
  Serious: Yes (Other)
  Sender: FDA-Public Use
  Company Number: TR-UCBSA-2017043825

PATIENT
  Age: 9 Year
  Sex: Male
  Weight: 20 kg

DRUGS (6)
  1. PIPERACILIN/TAZOBACTAM [Concomitant]
     Active Substance: PIPERACILLIN SODIUM\TAZOBACTAM SODIUM
     Indication: LUNG INFECTION
     Dosage: UNKNOWN DOSE
  2. BACLOFEN. [Concomitant]
     Active Substance: BACLOFEN
     Indication: MUSCLE SPASTICITY
     Dosage: UNKNOWN DOSE
  3. VITAMIN K [Concomitant]
     Active Substance: PHYTONADIONE
     Indication: LUNG INFECTION
     Dosage: UNKNOWN DOSE
  4. VALPROIC ACID. [Concomitant]
     Active Substance: VALPROIC ACID
     Indication: MUSCLE SPASTICITY
     Dosage: UNKNOWN DOSE
  5. NAC [Concomitant]
     Indication: LUNG INFECTION
     Dosage: UNKNOWN DOSE
  6. LEVETIRACETAM. [Suspect]
     Active Substance: LEVETIRACETAM
     Indication: PRODUCT USED FOR UNKNOWN INDICATION
     Dosage: UNKNOWN DOSE

REACTIONS (3)
  - Hepatic enzyme increased [Unknown]
  - Off label use [Unknown]
  - Thrombocytopenia [Unknown]
